FAERS Safety Report 21761423 (Version 1)
Quarter: 2022Q4

REPORT INFORMATION
  Report Type: Spontaneous
  Country: US (occurrence: US)
  Receive Date: 20221221
  Receipt Date: 20221221
  Transmission Date: 20230113
  Serious: No
  Sender: FDA-Public Use
  Company Number: US-PFIZER INC-202201384761

PATIENT
  Age: 79 Year
  Sex: Female

DRUGS (6)
  1. IBRANCE [Suspect]
     Active Substance: PALBOCICLIB
     Dosage: DAILY FOR 3 WEEKS ON AND THEN 1 WEEK OFF, REPEAT
     Route: 048
     Dates: start: 20221118
  2. ASPIRIN [Concomitant]
     Active Substance: ASPIRIN
  3. FULVESTRANT [Concomitant]
     Active Substance: FULVESTRANT
  4. VITAMINS NOS [Concomitant]
     Active Substance: VITAMINS
  5. VITAMIN D3 [Concomitant]
     Active Substance: CHOLECALCIFEROL
  6. XGEVA [Concomitant]
     Active Substance: DENOSUMAB
     Dosage: UNK

REACTIONS (4)
  - Throat irritation [Unknown]
  - Feeling abnormal [Unknown]
  - Paraesthesia [Unknown]
  - Skin discolouration [Unknown]

NARRATIVE: CASE EVENT DATE: 20220101
